FAERS Safety Report 8431493-0 (Version None)
Quarter: 2012Q2

REPORT INFORMATION
  Report Type: 
  Country: None (occurrence: None)
  Receive Date: 20120607
  Receipt Date: 20120607
  Transmission Date: 20120825
  Serious: Yes (Other)
  Sender: FDA-Public Use
  Company Number: None

PATIENT
  Sex: Male
  Weight: 63.5036 kg

DRUGS (1)
  1. MINOCYCLINE HCL [Suspect]
     Indication: RASH
     Dosage: 1 CAPSULE TWICE DAILY
     Dates: start: 20120507, end: 20120517

REACTIONS (1)
  - RASH GENERALISED [None]
